FAERS Safety Report 8234035-8 (Version None)
Quarter: 2012Q1

REPORT INFORMATION
  Report Type: 
  Country: None (occurrence: None)
  Receive Date: 20120326
  Receipt Date: 20120314
  Transmission Date: 20120608
  Serious: Yes (Hospitalization)
  Sender: FDA-Public Use
  Company Number: US-MYLANLABS-2012S1005520

PATIENT
  Age: 39 Year
  Sex: Male

DRUGS (4)
  1. CYCLOBENZAPRINE HCL [Concomitant]
     Route: 048
  2. KLONOPIN [Concomitant]
  3. GABAPENTIN [Concomitant]
     Route: 048
  4. FENTANYL-100 [Suspect]
     Indication: PAIN
     Dosage: CHANGED Q72H
     Route: 062
     Dates: start: 20110501, end: 20120309

REACTIONS (6)
  - PAIN [None]
  - DRUG EFFECT DECREASED [None]
  - DRY MOUTH [None]
  - DEHYDRATION [None]
  - CONSTIPATION [None]
  - SENSATION OF PRESSURE [None]
